FAERS Safety Report 21658775 (Version 1)
Quarter: 2022Q4

REPORT INFORMATION
  Report Type: Spontaneous
  Country: US (occurrence: None)
  Receive Date: 20221128
  Receipt Date: 20221128
  Transmission Date: 20230113
  Serious: No
  Sender: FDA-Public Use
  Company Number: None

PATIENT
  Age: 73 Year
  Sex: Female
  Weight: 48.99 kg

DRUGS (8)
  1. LISINOPRIL [Suspect]
     Active Substance: LISINOPRIL
     Indication: Renal disorder prophylaxis
     Dosage: FREQUENCY : DAILY;?
     Route: 048
     Dates: start: 20221102, end: 20221102
  2. LEVEMIR [Concomitant]
     Active Substance: INSULIN DETEMIR
  3. METFORMIN [Concomitant]
     Active Substance: METFORMIN HYDROCHLORIDE
  4. LATANOPROST [Concomitant]
     Active Substance: LATANOPROST
  5. PRAVASTATIN [Concomitant]
     Active Substance: PRAVASTATIN
  6. DONEPEZIL [Concomitant]
     Active Substance: DONEPEZIL
  7. Multivitamin for women 50 plus [Concomitant]
  8. FISH OIL [Concomitant]
     Active Substance: FISH OIL

REACTIONS (1)
  - Diarrhoea [None]

NARRATIVE: CASE EVENT DATE: 20221102
